FAERS Safety Report 25346260 (Version 1)
Quarter: 2025Q2

REPORT INFORMATION
  Report Type: Spontaneous
  Country: CN (occurrence: CN)
  Receive Date: 20250522
  Receipt Date: 20250522
  Transmission Date: 20250717
  Serious: Yes (Hospitalization, Other)
  Sender: BAXTER
  Company Number: None

PATIENT
  Age: 7 Year
  Sex: Female
  Weight: 24.3 kg

DRUGS (5)
  1. CYCLOPHOSPHAMIDE [Suspect]
     Active Substance: CYCLOPHOSPHAMIDE
     Indication: Acute lymphocytic leukaemia
     Dosage: 0.9 G, QD, ONCE
     Route: 041
     Dates: start: 20250220, end: 20250220
  2. SODIUM CHLORIDE [Suspect]
     Active Substance: SODIUM CHLORIDE
     Dosage: 250 ML, BID Q12H (0.9 % SODIUM CHLORIDE WITH CYTARABINE)
     Route: 041
     Dates: start: 20250220, end: 20250223
  3. SODIUM CHLORIDE [Suspect]
     Active Substance: SODIUM CHLORIDE
     Dosage: 250 ML, QD ONCE (0.9 % SODIUM CHLORIDE WITH CYCLOPHOSPHAMIDE)
     Route: 041
     Dates: start: 20250220, end: 20250220
  4. MERCAPTOPURINE [Suspect]
     Active Substance: MERCAPTOPURINE
     Indication: Acute lymphocytic leukaemia
     Dosage: 45 MG, QD, QN
     Route: 048
     Dates: start: 20250220, end: 20250223
  5. CYTARABINE [Suspect]
     Active Substance: CYTARABINE
     Indication: Acute lymphocytic leukaemia
     Dosage: 0.9 G, BID (Q12H)
     Route: 041
     Dates: start: 20250220, end: 20250223

REACTIONS (1)
  - Myelosuppression [Recovering/Resolving]

NARRATIVE: CASE EVENT DATE: 20250223
